FAERS Safety Report 10428035 (Version 1)
Quarter: 2014Q3

REPORT INFORMATION
  Report Type: Spontaneous
  Country: US (occurrence: US)
  Receive Date: 20140903
  Receipt Date: 20140903
  Transmission Date: 20150326
  Serious: Yes (Other)
  Sender: FDA-Public Use
  Company Number: US-BAYER-2014-127643

PATIENT
  Age: 23 Year
  Sex: Female

DRUGS (1)
  1. MIRENA [Suspect]
     Active Substance: LEVONORGESTREL
     Indication: CONTRACEPTION
     Dosage: 20 MCG/24HR, CONT
     Route: 015
     Dates: start: 20130401, end: 20140820

REACTIONS (6)
  - Patient-device incompatibility [Recovered/Resolved]
  - Bacterial vaginosis [None]
  - Post procedural haemorrhage [Recovered/Resolved]
  - Abdominal pain lower [Recovered/Resolved]
  - Uterine cervical pain [None]
  - Abdominal pain lower [None]

NARRATIVE: CASE EVENT DATE: 201304
